FAERS Safety Report 11691285 (Version 1)
Quarter: 2015Q4

REPORT INFORMATION
  Report Type: Spontaneous
  Country: US (occurrence: US)
  Receive Date: 20151102
  Receipt Date: 20151102
  Transmission Date: 20160304
  Serious: Yes (Other)
  Sender: FDA-Public Use
  Company Number: US-TEVA-604910USA

PATIENT
  Age: 66 Year
  Sex: Female

DRUGS (1)
  1. ACETAMINOPHEN/CODEINE #3 [Suspect]
     Active Substance: ACETAMINOPHEN\CODEINE PHOSPHATE
     Indication: PROCEDURAL PAIN
     Dates: start: 20151020, end: 20151020

REACTIONS (7)
  - Incoherent [Recovered/Resolved]
  - Abdominal pain upper [Recovered/Resolved]
  - Dysstasia [Recovered/Resolved]
  - Syncope [Recovered/Resolved]
  - Cardiac disorder [Recovered/Resolved]
  - Burning sensation [Recovered/Resolved]
  - Presyncope [Recovered/Resolved]

NARRATIVE: CASE EVENT DATE: 20151020
